FAERS Safety Report 18716203 (Version 1)
Quarter: 2021Q1

REPORT INFORMATION
  Report Type: Spontaneous
  Country: CN (occurrence: CN)
  Receive Date: 20210108
  Receipt Date: 20210108
  Transmission Date: 20210419
  Serious: Yes (Hospitalization, Other)
  Sender: FDA-Public Use
  Company Number: CN-GLAXOSMITHKLINE-CN2020259484

PATIENT
  Age: 83 Year
  Sex: Female

DRUGS (2)
  1. VOTALIN [Suspect]
     Active Substance: DICLOFENAC SODIUM
     Indication: THORACIC VERTEBRAL FRACTURE
     Dosage: 1 DF, QD
     Route: 048
     Dates: start: 20201205, end: 20201212
  2. VOTALIN [Suspect]
     Active Substance: DICLOFENAC SODIUM
     Indication: PAIN PROPHYLAXIS

REACTIONS (2)
  - Cardiac failure [Recovering/Resolving]
  - Upper gastrointestinal haemorrhage [Recovering/Resolving]

NARRATIVE: CASE EVENT DATE: 20201213
